FAERS Safety Report 15096176 (Version 1)
Quarter: 2018Q2

REPORT INFORMATION
  Report Type: Spontaneous
  Country: US (occurrence: US)
  Receive Date: 20180609
  Receipt Date: 20180609
  Transmission Date: 20180711
  Serious: Yes (Disabling)
  Sender: FDA-Public Use
  Company Number: None

PATIENT
  Age: 42 Year
  Sex: Male
  Weight: 99 kg

DRUGS (1)
  1. FLUOXETINE 40MG [Suspect]
     Active Substance: FLUOXETINE HYDROCHLORIDE
     Indication: MAJOR DEPRESSION
     Dosage: ?          QUANTITY:30 ;?
     Route: 048

REACTIONS (3)
  - Drug ineffective [None]
  - Therapeutic response changed [None]
  - Depression [None]

NARRATIVE: CASE EVENT DATE: 20180515
